FAERS Safety Report 5201701-8 (Version None)
Quarter: 2007Q1

REPORT INFORMATION
  Report Type: 
  Country: None (occurrence: None)
  Receive Date: 20070108
  Receipt Date: 20061227
  Transmission Date: 20070707
  Serious: Yes (Hospitalization, Other)
  Sender: FDA-Public Use
  Company Number: HQWYE026822SEP06

PATIENT
  Sex: Male

DRUGS (3)
  1. ENBREL [Suspect]
     Indication: RHEUMATOID ARTHRITIS
     Route: 058
     Dates: start: 20060405, end: 20060916
  2. ISONIAZID [Concomitant]
     Dosage: UNKNOWN
     Route: 048
  3. BUCILLAMINE [Concomitant]
     Dosage: UNKNOWN
     Route: 048

REACTIONS (1)
  - PNEUMOTHORAX [None]
